FAERS Safety Report 14284530 (Version 1)
Quarter: 2017Q4

REPORT INFORMATION
  Report Type: Spontaneous
  Country: US (occurrence: None)
  Receive Date: 20171214
  Receipt Date: 20171214
  Transmission Date: 20180321
  Serious: No
  Sender: FDA-Public Use
  Company Number: None

PATIENT
  Age: 61 Year
  Sex: Male

DRUGS (4)
  1. INLYTA [Suspect]
     Active Substance: AXITINIB
     Indication: RENAL CANCER
     Dosage: 1MG TAB 3 TABS EVERY 12 HRS ORAL
     Route: 048
     Dates: start: 20150915
  2. SUTENT [Suspect]
     Active Substance: SUNITINIB MALATE
     Indication: RENAL CANCER
     Route: 048
     Dates: start: 20150311
  3. METAMUCIL [Concomitant]
     Active Substance: PLANTAGO SEED
  4. OPIUM. [Concomitant]
     Active Substance: OPIUM

REACTIONS (4)
  - Therapy non-responder [None]
  - Crohn^s disease [None]
  - Blood potassium decreased [None]
  - Blood magnesium decreased [None]
